FAERS Safety Report 12230587 (Version 2)
Quarter: 2016Q2

REPORT INFORMATION
  Report Type: Spontaneous
  Country: US (occurrence: US)
  Receive Date: 20160401
  Receipt Date: 20160507
  Transmission Date: 20160815
  Serious: No
  Sender: FDA-Public Use
  Company Number: US-JNJFOC-20160221264

PATIENT
  Age: 76 Year
  Sex: Male

DRUGS (4)
  1. OMEPRAZOLE. [Concomitant]
     Active Substance: OMEPRAZOLE
     Indication: GASTROOESOPHAGEAL REFLUX DISEASE
     Route: 065
  2. XARELTO [Suspect]
     Active Substance: RIVAROXABAN
     Indication: PULMONARY THROMBOSIS
     Route: 048
     Dates: start: 20151124
  3. CENTRUM SILVER [Concomitant]
     Active Substance: MINERALS\VITAMINS
     Route: 065
  4. HYDROCHLOROTHIAZIDE. [Concomitant]
     Active Substance: HYDROCHLOROTHIAZIDE
     Indication: HYPERTENSION
     Route: 065

REACTIONS (7)
  - Pruritus [Recovered/Resolved]
  - Nipple pain [Not Recovered/Not Resolved]
  - Headache [Recovered/Resolved]
  - Initial insomnia [Recovered/Resolved]
  - Nasopharyngitis [Recovered/Resolved]
  - Breast pain [Not Recovered/Not Resolved]
  - Nipple swelling [Not Recovered/Not Resolved]

NARRATIVE: CASE EVENT DATE: 201511
